FAERS Safety Report 4765618-5 (Version None)
Quarter: 2005Q3

REPORT INFORMATION
  Report Type: 
  Country: None (occurrence: None)
  Receive Date: 20050906
  Receipt Date: 20050826
  Transmission Date: 20060218
  Serious: Yes (Hospitalization)
  Sender: FDA-Public Use
  Company Number: 2005121231

PATIENT
  Age: 81 Year
  Sex: Female

DRUGS (10)
  1. ATORVASTATIN CALCIUM [Suspect]
     Indication: ILL-DEFINED DISORDER
     Dosage: (1 IN 1 D), ORAL
     Route: 048
  2. CLONIDINE [Suspect]
     Indication: ILL-DEFINED DISORDER
     Dosage: (1 IN 1 D), ORAL
     Route: 048
     Dates: end: 20050802
  3. HYPERIUM (RILMENIDINE) [Suspect]
     Indication: ILL-DEFINED DISORDER
     Dosage: ORAL
     Route: 048
  4. COTAREG (HYDROCHLOROTHIAZIDE, VALSARTAN) [Suspect]
     Indication: ILL-DEFINED DISORDER
     Dosage: (1 IN 1 D),
  5. NICARDIPINE HCL [Suspect]
     Indication: ILL-DEFINED DISORDER
     Dosage: 100 MG (50 MG, 2 IN 1 D), ORAL
     Route: 048
  6. TEGRETOL [Suspect]
     Indication: ILL-DEFINED DISORDER
     Dosage: 400 MG (400 MG, 1 IN 1 D), ORAL
     Route: 048
  7. NITROGLYCERIN [Concomitant]
  8. PLAVIX [Concomitant]
  9. ZOPICLONE (ZOPICLONE) [Concomitant]
  10. INSULIN LISPRO (INSULIN LISPRO) [Concomitant]

REACTIONS (1)
  - TOXIC SKIN ERUPTION [None]
